FAERS Safety Report 21747184 (Version 1)
Quarter: 2022Q4

REPORT INFORMATION
  Report Type: Spontaneous
  Country: CN (occurrence: None)
  Receive Date: 20221219
  Receipt Date: 20221219
  Transmission Date: 20230113
  Serious: Yes (Other)
  Sender: FDA-Public Use
  Company Number: CN-ROCHE-3245764

PATIENT
  Age: 51 Year
  Sex: Female

DRUGS (4)
  1. HERCEPTIN [Suspect]
     Active Substance: TRASTUZUMAB
     Indication: Invasive breast carcinoma
     Dosage: 8 MG/KG FOR THE FIRST DOSE, THEN 6 MG/KG, HP.
     Route: 065
     Dates: start: 20220729
  2. PERJETA [Suspect]
     Active Substance: PERTUZUMAB
     Indication: Invasive breast carcinoma
     Dosage: FIRST DOSE 840 MG, THEN 420 MG, HP.
     Route: 065
     Dates: start: 20220729
  3. DOCETAXEL [Concomitant]
     Active Substance: DOCETAXEL
     Indication: Invasive breast carcinoma
     Dates: start: 20220729, end: 2022
  4. CARBOPLATIN [Concomitant]
     Active Substance: CARBOPLATIN
     Indication: Invasive breast carcinoma
     Dosage: AUC=6
     Dates: start: 20220729, end: 2022

REACTIONS (1)
  - Myelosuppression [Unknown]
